FAERS Safety Report 22083823 (Version 1)
Quarter: 2023Q1

REPORT INFORMATION
  Report Type: Spontaneous
  Country: US (occurrence: None)
  Receive Date: 20230309
  Receipt Date: 20230309
  Transmission Date: 20230418
  Serious: No
  Sender: FDA-Public Use
  Company Number: None

PATIENT

DRUGS (2)
  1. WELLBUTRIN [Suspect]
     Active Substance: BUPROPION HYDROCHLORIDE
  2. WELLBUTRIN [Suspect]
     Active Substance: BUPROPION HYDROCHLORIDE

REACTIONS (2)
  - Adverse drug reaction [None]
  - Product dispensing error [None]

NARRATIVE: CASE EVENT DATE: 20230112
